FAERS Safety Report 19565431 (Version 1)
Quarter: 2021Q3

REPORT INFORMATION
  Report Type: Spontaneous
  Country: US (occurrence: US)
  Receive Date: 20210716
  Receipt Date: 20210716
  Transmission Date: 20211014
  Serious: Yes (Other)
  Sender: FDA-Public Use
  Company Number: NVSC2021US158193

PATIENT
  Age: 58 Year
  Sex: Male

DRUGS (2)
  1. RANITIDINE. [Suspect]
     Active Substance: RANITIDINE
     Indication: RENAL TRANSPLANT
     Dosage: 150 MG, QD
     Route: 065
     Dates: start: 200312, end: 201907
  2. RANITIDINE. [Suspect]
     Active Substance: RANITIDINE
     Indication: RENAL TRANSPLANT
     Dosage: 150 MG, QD
     Route: 065
     Dates: start: 200312, end: 201907

REACTIONS (2)
  - Prostate cancer [Unknown]
  - Product use in unapproved indication [Unknown]

NARRATIVE: CASE EVENT DATE: 20161003
